FAERS Safety Report 4443993-9 (Version None)
Quarter: 2004Q3

REPORT INFORMATION
  Report Type: 
  Country: None (occurrence: None)
  Receive Date: 20040729
  Receipt Date: 20030909
  Transmission Date: 20050211
  Serious: Yes (Other)
  Sender: FDA-Public Use
  Company Number: US-JNJFOC-20030902469

PATIENT
  Age: 35 Year
  Sex: Male

DRUGS (1)
  1. RISPERDAL [Suspect]
     Dosage: 3 MG, 1 IN 1 DAY, ORAL
     Route: 048
     Dates: start: 20030801

REACTIONS (1)
  - WHITE BLOOD CELL COUNT DECREASED [None]
